FAERS Safety Report 11349118 (Version 1)
Quarter: 2015Q3

REPORT INFORMATION
  Report Type: Spontaneous
  Country: US (occurrence: US)
  Receive Date: 20150807
  Receipt Date: 20150807
  Transmission Date: 20151125
  Serious: No
  Sender: FDA-Public Use
  Company Number: US-ELI_LILLY_AND_COMPANY-US201507003907

PATIENT
  Age: 21 Year
  Sex: Female

DRUGS (1)
  1. STRATTERA [Suspect]
     Active Substance: ATOMOXETINE HYDROCHLORIDE
     Indication: ATTENTION DEFICIT/HYPERACTIVITY DISORDER
     Dosage: UNK, OTHER: STARTER PACK, BELIEVED EITHER 25 OR 40 MG
     Route: 065
     Dates: start: 20150701

REACTIONS (1)
  - Urinary incontinence [Not Recovered/Not Resolved]
